FAERS Safety Report 8367506-4 (Version None)
Quarter: 2012Q2

REPORT INFORMATION
  Report Type: 
  Country: None (occurrence: None)
  Receive Date: 20120517
  Receipt Date: 20120410
  Transmission Date: 20120825
  Serious: No
  Sender: FDA-Public Use
  Company Number: US-GLAXOSMITHKLINE-A0973031A

PATIENT
  Age: 60 Year
  Sex: Male

DRUGS (3)
  1. VOTRIENT [Suspect]
     Indication: RENAL CANCER
     Dosage: 200MG PER DAY
     Route: 048
     Dates: start: 20120327
  2. METOPROLOL [Concomitant]
  3. HYDROCHLOROTHIAZIDE [Concomitant]

REACTIONS (2)
  - FATIGUE [None]
  - THYROID FUNCTION TEST ABNORMAL [None]
